FAERS Safety Report 8661494 (Version 2)
Quarter: 2012Q4

REPORT INFORMATION
  Report Type: Spontaneous
  Country: US (occurrence: None)
  Receive Date: 20120626
  Receipt Date: 20120919
  Transmission Date: 20130627
  Serious: Yes (Hospitalization, Disabling, Other)
  Sender: FDA-Public Use
  Company Number: 2011MA007912

PATIENT
  Sex: Female
  Weight: 62.6 kg

DRUGS (46)
  1. METOCLOPRAMIDE [Suspect]
     Indication: PRODUCT USED FOR UNKNOWN INDICATION
     Route: 048
     Dates: start: 20100209, end: 20101204
  2. LOTENSIN [Concomitant]
  3. TENORMIN [Concomitant]
  4. ZOLOFT [Concomitant]
  5. QUETIAPINE [Concomitant]
  6. RISPERIDONE [Concomitant]
  7. SLEEP MEDICATIONS [Concomitant]
  8. STEROIDS [Concomitant]
  9. ATIVAN [Concomitant]
  10. PAXIL [Concomitant]
  11. SEREVENT DISKUS [Concomitant]
  12. ATROVENT [Concomitant]
  13. THEOPHYLLINE [Concomitant]
  14. FLOVENT [Concomitant]
  15. OLANZAPINE [Concomitant]
  16. BUSPAR [Concomitant]
  17. CELEXA [Concomitant]
  18. ABILIFY [Concomitant]
  19. WELLBUTRIN [Concomitant]
  20. BENADRYL [Concomitant]
  21. AZMACORT [Concomitant]
  22. CLONIDINE [Concomitant]
  23. VERAPAMIL HYDROCHLORIDE [Concomitant]
  24. PLAVIX [Concomitant]
  25. DIOVAN [Concomitant]
  26. ACETAMINOPHEN [Concomitant]
  27. ADVAIR [Concomitant]
  28. ALBUTEROL (VENTOLIN) [Concomitant]
  29. BUTALBITAL/APAP/CAFFEINE [Concomitant]
  30. CALCIUM/VITAMIN D [Concomitant]
  31. DIPHENHYDRAMINE [Concomitant]
  32. FAMOTIDINE [Concomitant]
  33. FERROUS SULFATE [Concomitant]
  34. FOSAMAX [Concomitant]
  35. HYDROXYZINE [Concomitant]
  36. METOPROLOL [Concomitant]
  37. MICARDIS [Concomitant]
  38. NEXIUM [Concomitant]
  39. NIFEDIPINE [Concomitant]
  40. PREDNISONE [Concomitant]
  41. SEROQUEL [Concomitant]
  42. SIMVASTATIN [Concomitant]
  43. SINGULAIR [Concomitant]
  44. TOPIRAMATE [Concomitant]
  45. TRAZODONE [Concomitant]
  46. ZYPREXA [Concomitant]

REACTIONS (12)
  - Extrapyramidal disorder [None]
  - Tremor [None]
  - Economic problem [None]
  - Movement disorder [None]
  - Cardiac disorder [None]
  - Mental disorder [None]
  - Depression [None]
  - Thyroid neoplasm [None]
  - Dyskinesia [None]
  - Hypoaesthesia [None]
  - Musculoskeletal disorder [None]
  - Goitre [None]
